FAERS Safety Report 7318901-3 (Version None)
Quarter: 2011Q1

REPORT INFORMATION
  Report Type: 
  Country: None (occurrence: None)
  Receive Date: 20110228
  Receipt Date: 20110228
  Transmission Date: 20110831
  Serious: Yes (Hospitalization)
  Sender: FDA-Public Use
  Company Number: HU-ELI_LILLY_AND_COMPANY-HU201008000372

PATIENT
  Sex: Male
  Weight: 85 kg

DRUGS (18)
  1. PENTOXIFYLLINE [Concomitant]
     Indication: ARTERIOSCLEROSIS OBLITERANS
     Dates: start: 20040101
  2. SPIRIVA [Concomitant]
     Indication: CHRONIC OBSTRUCTIVE PULMONARY DISEASE
     Dates: start: 20090101
  3. VITAMIN B-12 [Concomitant]
     Indication: PROPHYLAXIS
     Dates: start: 20100416, end: 20100416
  4. FOSTER                             /00500401/ [Concomitant]
     Indication: CHRONIC OBSTRUCTIVE PULMONARY DISEASE
     Dates: start: 20100601
  5. GEMCITABINE HYDROCHLORIDE [Suspect]
     Indication: NON-SMALL CELL LUNG CANCER
     Dosage: 2500 MG, OTHER
     Route: 042
     Dates: start: 20100419
  6. DALACIN T [Concomitant]
     Indication: RASH
     Dates: start: 20100503
  7. NEULASTA [Concomitant]
     Indication: PROPHYLAXIS
     Dates: start: 20100426, end: 20100426
  8. CISPLATIN [Suspect]
     Indication: NON-SMALL CELL LUNG CANCER
     Dosage: 150 MG, OTHER
     Route: 042
     Dates: start: 20100419
  9. ACETYLSALICYLIC ACID [Concomitant]
     Indication: ARTERIOSCLEROSIS OBLITERANS
     Dates: start: 20040101
  10. ATORVASTATIN [Concomitant]
     Indication: ARTERIOSCLEROSIS OBLITERANS
     Dates: start: 20040101
  11. NECITUMUMAB (11F8) (LY3012211) [Suspect]
     Indication: NON-SMALL CELL LUNG CANCER
     Dosage: 800 MG, OTHER
     Route: 042
     Dates: start: 20100419
  12. ELIDEL [Concomitant]
     Indication: RASH
     Route: 061
     Dates: start: 20100503
  13. FENISTIL [Concomitant]
     Indication: RASH
     Dates: start: 20100427, end: 20100503
  14. TARDYFERON FOL [Concomitant]
     Indication: PROPHYLAXIS
     Dates: start: 20100416
  15. DOXYCYCLIN /00055701/ [Concomitant]
     Indication: RASH
     Dates: start: 20100503
  16. NEULASTA [Concomitant]
     Dates: start: 20100519, end: 20100519
  17. NEULASTA [Concomitant]
     Dates: start: 20100721, end: 20100721
  18. ATIMOS [Concomitant]
     Indication: CHRONIC OBSTRUCTIVE PULMONARY DISEASE
     Dates: start: 20100301

REACTIONS (3)
  - PLEURAL EFFUSION [None]
  - CONVULSION [None]
  - THROMBOCYTOPENIA [None]
